FAERS Safety Report 8035529-0 (Version None)
Quarter: 2012Q1

REPORT INFORMATION
  Report Type: 
  Country: None (occurrence: None)
  Receive Date: 20120111
  Receipt Date: 20120105
  Transmission Date: 20120608
  Serious: Yes (Other)
  Sender: FDA-Public Use
  Company Number: FR-JNJFOC-20120102373

PATIENT
  Sex: Female

DRUGS (5)
  1. RABEPRAZOLE SODIUM [Concomitant]
     Route: 048
     Dates: start: 20111021, end: 20111025
  2. XARELTO [Suspect]
     Indication: KNEE ARTHROPLASTY
     Route: 048
     Dates: start: 20111021, end: 20111024
  3. KETOPROFEN [Concomitant]
     Route: 048
     Dates: start: 20111021, end: 20111024
  4. MORPHINE SULFATE [Concomitant]
     Route: 048
     Dates: start: 20111021, end: 20111025
  5. ACETAMINOPHEN [Concomitant]
     Route: 048
     Dates: start: 20111021

REACTIONS (1)
  - VENOUS THROMBOSIS [None]
